FAERS Safety Report 12099345 (Version 1)
Quarter: 2016Q1

REPORT INFORMATION
  Report Type: Spontaneous
  Country: US (occurrence: US)
  Receive Date: 20160222
  Receipt Date: 20160222
  Transmission Date: 20160526
  Serious: No
  Sender: FDA-Public Use
  Company Number: US-TEVA-558117USA

PATIENT
  Age: 55 Year
  Sex: Female

DRUGS (1)
  1. AMOXICILLIN. [Suspect]
     Active Substance: AMOXICILLIN
     Indication: SINUSITIS
     Route: 065
     Dates: start: 20150422

REACTIONS (4)
  - Feeling abnormal [Unknown]
  - Head discomfort [Unknown]
  - Ocular hyperaemia [Unknown]
  - Glassy eyes [Unknown]

NARRATIVE: CASE EVENT DATE: 20150423
